FAERS Safety Report 5131759-6 (Version None)
Quarter: 2006Q4

REPORT INFORMATION
  Report Type: 
  Country: None (occurrence: None)
  Receive Date: 20061020
  Receipt Date: 20060314
  Transmission Date: 20070319
  Serious: Yes (Hospitalization)
  Sender: FDA-Public Use
  Company Number: CG-MERCK-0604USA02872

PATIENT
  Age: 24 Year
  Sex: Female
  Weight: 55 kg

DRUGS (1)
  1. STROMECTOL [Suspect]
     Route: 048
     Dates: start: 20060204, end: 20060204

REACTIONS (5)
  - HEADACHE [None]
  - OCULAR HYPERAEMIA [None]
  - PRURITUS [None]
  - TACHYPNOEA [None]
  - VERTIGO [None]
